FAERS Safety Report 24390573 (Version 1)
Quarter: 2024Q4

REPORT INFORMATION
  Report Type: Spontaneous
  Country: GB (occurrence: GB)
  Receive Date: 20241003
  Receipt Date: 20241003
  Transmission Date: 20250114
  Serious: Yes (Other)
  Sender: AMGEN
  Company Number: None

PATIENT
  Age: 68 Year
  Sex: Male

DRUGS (1)
  1. ARANESP [Suspect]
     Active Substance: DARBEPOETIN ALFA
     Indication: Chronic kidney disease
     Dosage: 60 MICROGRAM, Q2WK
     Route: 065
     Dates: start: 2023

REACTIONS (1)
  - Polycythaemia [Unknown]

NARRATIVE: CASE EVENT DATE: 20240925
